FAERS Safety Report 22073204 (Version 2)
Quarter: 2023Q1

REPORT INFORMATION
  Report Type: Report from Study
  Country: US (occurrence: US)
  Receive Date: 20230308
  Receipt Date: 20230313
  Transmission Date: 20230418
  Serious: No
  Sender: FDA-Public Use
  Company Number: US-ABBVIE-4300710

PATIENT
  Age: 61 Year
  Sex: Male

DRUGS (1)
  1. HUMIRA [Suspect]
     Active Substance: ADALIMUMAB
     Indication: Psoriasis
     Dosage: CITRATE FREE
     Route: 058

REACTIONS (5)
  - Presyncope [Unknown]
  - Illness [Recovering/Resolving]
  - Nasopharyngitis [Unknown]
  - Infection [Unknown]
  - Dehydration [Unknown]

NARRATIVE: CASE EVENT DATE: 20221101
